FAERS Safety Report 6539174-5 (Version None)
Quarter: 2010Q1

REPORT INFORMATION
  Report Type: 
  Country: None (occurrence: None)
  Receive Date: 20100112
  Receipt Date: 20100104
  Transmission Date: 20100710
  Serious: Yes (Other)
  Sender: FDA-Public Use
  Company Number: 002216

PATIENT
  Sex: Female
  Weight: 68 kg

DRUGS (5)
  1. NEUPRO [Suspect]
     Indication: PARKINSON'S DISEASE
     Dosage: (16 MG QD TRANSDERMAL)
     Route: 062
     Dates: start: 20090901, end: 20091001
  2. MADOPAR LT [Concomitant]
  3. MADOPAR [Concomitant]
  4. LEVOTHYROXINE SODIUM [Concomitant]
  5. VALORON [Concomitant]

REACTIONS (2)
  - MUSCULAR WEAKNESS [None]
  - POSTURE ABNORMAL [None]
